FAERS Safety Report 5471518-8 (Version None)
Quarter: 2007Q3

REPORT INFORMATION
  Report Type: 
  Country: None (occurrence: None)
  Receive Date: 20070928
  Receipt Date: 20061208
  Transmission Date: 20080115
  Serious: No
  Sender: FDA-Public Use
  Company Number: US-BRISTOL-MYERS SQUIBB COMPANY-13607015

PATIENT
  Age: 80 Year
  Sex: Male
  Weight: 97 kg

DRUGS (4)
  1. DEFINITY [Suspect]
     Indication: ECHOCARDIOGRAM
  2. ASPIRIN [Concomitant]
  3. ALBUTEROL [Concomitant]
  4. ATROVENT [Concomitant]

REACTIONS (1)
  - BACK PAIN [None]
